FAERS Safety Report 9340899 (Version 1)
Quarter: 2013Q2

REPORT INFORMATION
  Report Type: Spontaneous
  Country: AT (occurrence: None)
  Receive Date: 20130605
  Receipt Date: 20130605
  Transmission Date: 20140414
  Serious: Yes (Death, Other)
  Sender: FDA-Public Use
  Company Number: FK201301842

PATIENT
  Sex: Male

DRUGS (7)
  1. METHYLPREDNISOLONE [Suspect]
     Indication: IMMUNOSUPPRESSANT DRUG THERAPY
     Dosage: THREE DOSES
  2. ALEMTUZUMAB [Suspect]
     Indication: IMMUNOSUPPRESSANT DRUG THERAPY
  3. TACROLIMUS (TACROLIMUS) [Suspect]
     Indication: IMMUNOSUPPRESSANT DRUG THERAPY
  4. PREDNISOLONE (PREDNISOLONE) [Suspect]
     Indication: IMMUNOSUPPRESSANT DRUG THERAPY
  5. CYCLOSPORINE (CICLOSPORIN) [Concomitant]
  6. 20% LIPIDS (LIPID EMULSION) [Concomitant]
  7. 25% GLUCOSE (GLUCOSE) [Concomitant]

REACTIONS (7)
  - Hyperammonaemia [None]
  - Malaise [None]
  - Lung infection [None]
  - Idiosyncratic drug reaction [None]
  - Continuous haemodiafiltration [None]
  - Brain scan abnormal [None]
  - Post procedural complication [None]
